FAERS Safety Report 20796406 (Version 3)
Quarter: 2022Q2

REPORT INFORMATION
  Report Type: Spontaneous
  Country: IT (occurrence: IT)
  Receive Date: 20220506
  Receipt Date: 20220603
  Transmission Date: 20220721
  Serious: Yes (Other)
  Sender: FDA-Public Use
  Company Number: IT-NOVARTISPH-NVSC2022IT101926

PATIENT

DRUGS (1)
  1. CANAKINUMAB [Suspect]
     Active Substance: CANAKINUMAB
     Indication: Still^s disease
     Dosage: UNK
     Route: 065
     Dates: start: 202109, end: 202201

REACTIONS (7)
  - Haemophagocytic lymphohistiocytosis [Unknown]
  - Leukopenia [Unknown]
  - Chemokine increased [Unknown]
  - Interleukin level increased [Unknown]
  - Disease recurrence [Unknown]
  - Viral infection [Unknown]
  - Hepatic enzyme increased [Unknown]
